FAERS Safety Report 22007866 (Version 4)
Quarter: 2023Q1

REPORT INFORMATION
  Report Type: Spontaneous
  Country: DE (occurrence: DE)
  Receive Date: 20230218
  Receipt Date: 20230318
  Transmission Date: 20230418
  Serious: Yes (Hospitalization, Other)
  Sender: FDA-Public Use
  Company Number: DE-BRISTOL-MYERS SQUIBB COMPANY-2023-019065

PATIENT
  Age: 69 Year
  Sex: Female

DRUGS (4)
  1. CARBOPLATIN [Suspect]
     Active Substance: CARBOPLATIN
     Indication: Non-small cell lung cancer
     Dosage: 431 MG, Q3W (LAST ADMINISTRATION DOSE DATE WAS 17 OCT 2022, DURATION 22 DAYS)
     Route: 042
     Dates: start: 20220926, end: 20221017
  2. OPDIVO [Suspect]
     Active Substance: NIVOLUMAB
     Indication: Non-small cell lung cancer
     Dosage: 360 MG, Q3W (LAST ADMINISTRATION DOSE DATE WAS 19 DEC 2022, DURATION 85 DAYS)
     Route: 042
     Dates: start: 20220926, end: 20221219
  3. YERVOY [Suspect]
     Active Substance: IPILIMUMAB
     Indication: Non-small cell lung cancer
     Dosage: 90 MG (6 WEEK) (LAST ADMINISTRATION DOSE DATE WAS 19 DEC 2022) (DURATION 85 DAYS)
     Route: 042
     Dates: start: 20220926, end: 20221219
  4. LEVOTHYROXINE [Concomitant]
     Active Substance: LEVOTHYROXINE
     Indication: Product used for unknown indication
     Dosage: UNK
     Route: 065

REACTIONS (3)
  - Immune-mediated hypophysitis [Not Recovered/Not Resolved]
  - General physical health deterioration [Not Recovered/Not Resolved]
  - Hypokalaemia [Recovered/Resolved]

NARRATIVE: CASE EVENT DATE: 20230206
